FAERS Safety Report 8979110 (Version 5)
Quarter: 2013Q3

REPORT INFORMATION
  Report Type: Spontaneous
  Country: US (occurrence: US)
  Receive Date: 20121221
  Receipt Date: 20130918
  Transmission Date: 20140515
  Serious: Yes (Hospitalization, Disabling, Other)
  Sender: FDA-Public Use
  Company Number: US-009507513-1212USA008452

PATIENT
  Sex: Female

DRUGS (6)
  1. FOSAMAX [Suspect]
     Indication: OSTEOPENIA
     Dosage: 70 MG, QW
     Route: 048
     Dates: start: 200401, end: 201104
  2. SYNTHROID [Concomitant]
     Indication: THYROID DISORDER
     Dosage: 88 MICROGRAM, UNK
     Dates: start: 1953
  3. VESICARE [Concomitant]
     Indication: BLADDER DISORDER
     Dosage: 5 MG, UNK
     Dates: start: 2000
  4. EXELON (RIVASTIGMINE TARTRATE) [Concomitant]
     Indication: MEMORY IMPAIRMENT
     Dosage: 3 MG, UNK
     Dates: start: 2003
  5. EXELON (RIVASTIGMINE TARTRATE) [Concomitant]
     Indication: VASCULAR PARKINSONISM
  6. ALENDRONATE SODIUM [Suspect]
     Indication: OSTEOPENIA
     Dosage: 70 MG, QW

REACTIONS (26)
  - Femur fracture [Not Recovered/Not Resolved]
  - Intramedullary rod insertion [Unknown]
  - Fracture nonunion [Unknown]
  - Bone graft [Recovering/Resolving]
  - Medical device removal [Unknown]
  - Fall [Unknown]
  - Low turnover osteopathy [Unknown]
  - Depression [Not Recovered/Not Resolved]
  - Anxiety [Not Recovered/Not Resolved]
  - Bursitis [Unknown]
  - Contusion [Unknown]
  - Fall [Unknown]
  - Device failure [Unknown]
  - Depression [Unknown]
  - Haemoglobin decreased [Recovering/Resolving]
  - Blood pressure decreased [Recovering/Resolving]
  - Heart rate decreased [Unknown]
  - Hypertensive heart disease [Unknown]
  - Discomfort [Unknown]
  - Osteoporosis [Unknown]
  - Urinary retention [Unknown]
  - Asthenia [Unknown]
  - Nausea [Unknown]
  - Dizziness [Unknown]
  - Musculoskeletal chest pain [Unknown]
  - Gastrooesophageal reflux disease [Unknown]
